FAERS Safety Report 7130802-2 (Version None)
Quarter: 2010Q4

REPORT INFORMATION
  Report Type: 
  Country: None (occurrence: None)
  Receive Date: 20101201
  Receipt Date: 20101123
  Transmission Date: 20110411
  Serious: Yes (Hospitalization)
  Sender: FDA-Public Use
  Company Number: PHHY2010FR60885

PATIENT
  Sex: Male
  Weight: 65 kg

DRUGS (3)
  1. MYFORTIC [Suspect]
     Indication: NEPHROTIC SYNDROME
     Dosage: 1.44 G, QD
     Dates: start: 20100804
  2. CORTANCYL [Suspect]
     Indication: NEPHROTIC SYNDROME
     Dosage: 35 MG
     Dates: start: 20100804
  3. CORTICOSTEROID NOS [Concomitant]
     Dosage: 30 MG

REACTIONS (4)
  - AGGRESSION [None]
  - ANXIETY [None]
  - INSOMNIA [None]
  - IRRITABILITY [None]
